FAERS Safety Report 13219186 (Version 1)
Quarter: 2017Q1

REPORT INFORMATION
  Report Type: Spontaneous
  Country: CA (occurrence: CA)
  Receive Date: 20170210
  Receipt Date: 20170210
  Transmission Date: 20170428
  Serious: Yes (Other)
  Sender: FDA-Public Use
  Company Number: CA-ORION CORPORATION ORION PHARMA-TREX2017-0440

PATIENT
  Age: 67 Year
  Sex: Female

DRUGS (7)
  1. LYRICA [Concomitant]
     Active Substance: PREGABALIN
     Dosage: STRENGTH: 75 MG
     Route: 065
  2. AURO-CELECOXIB [Concomitant]
     Dosage: STRENGTH: 200 MG
     Route: 048
  3. ARTHRITIS ACETAMINOPHEN OP+ [Concomitant]
     Dosage: STRENGTH: 650 MG
     Route: 048
  4. DILAUDID [Concomitant]
     Active Substance: HYDROMORPHONE HYDROCHLORIDE
     Indication: PAIN
     Dosage: STRENGTH: 1 MG; 1-2 TABLETS EVERY 3-4 HOURS IF NEEDED
     Route: 048
  5. TRIAMCINOLONE [Concomitant]
     Active Substance: TRIAMCINOLONE
     Dosage: STRENGTH: 40 MG/ML
     Route: 030
  6. METHOTREXATE (TRADE NAME UNKNOWN) [Suspect]
     Active Substance: METHOTREXATE
     Indication: RHEUMATOID ARTHRITIS
     Dosage: 2.5MG TABLET, 2 TABLETS AM, 3 TABLETS PM ONE WEEKLY
     Route: 048
     Dates: start: 2000, end: 2003
  7. APO-HYDROXYQUINE [Concomitant]
     Active Substance: HYDROXYCHLOROQUINE SULFATE
     Route: 065

REACTIONS (3)
  - Hepatotoxicity [Unknown]
  - Drug ineffective [Unknown]
  - Drug intolerance [Unknown]
